FAERS Safety Report 10994536 (Version 2)
Quarter: 2015Q2

REPORT INFORMATION
  Report Type: Report from Study
  Country: JP (occurrence: JP)
  Receive Date: 20150407
  Receipt Date: 20150424
  Transmission Date: 20150821
  Serious: Yes (Hospitalization, Other)
  Sender: FDA-Public Use
  Company Number: JP-ASTRAZENECA-2015SE30940

PATIENT
  Age: 30588 Day
  Sex: Male
  Weight: 42 kg

DRUGS (18)
  1. FUROSEMIDE. [Concomitant]
     Active Substance: FUROSEMIDE
     Indication: CARDIAC FAILURE
     Route: 048
     Dates: start: 2013, end: 20150330
  2. LINGLIPTIN [Concomitant]
     Indication: DIABETES MELLITUS
     Route: 048
     Dates: start: 2013, end: 20150330
  3. VOGLIBOSE [Concomitant]
     Active Substance: VOGLIBOSE
     Indication: DIABETES MELLITUS
     Dosage: 1 TAB DAILY
     Route: 048
     Dates: start: 2013, end: 20150330
  4. DIGOXIN. [Concomitant]
     Active Substance: DIGOXIN
     Indication: CARDIAC FAILURE
     Route: 048
     Dates: start: 2013, end: 20150330
  5. FLUTICASONE FUROATE [Concomitant]
     Active Substance: FLUTICASONE FUROATE
     Indication: SEASONAL ALLERGY
     Dosage: 1
     Route: 045
     Dates: start: 2013, end: 20150330
  6. BERBERINE CHLORIDE HYDRATE [Concomitant]
     Indication: CONSTIPATION
     Dosage: 1 TAB DAILY
     Route: 048
     Dates: start: 2013, end: 20150330
  7. POLAPREZINC [Concomitant]
     Active Substance: POLAPREZINC
     Indication: PROPHYLAXIS AGAINST GASTROINTESTINAL ULCER
     Route: 048
     Dates: start: 2013, end: 20150330
  8. AZD6140 [Suspect]
     Active Substance: TICAGRELOR
     Indication: PERIPHERAL ARTERIAL OCCLUSIVE DISEASE
     Route: 048
     Dates: start: 20130516, end: 20150330
  9. INSULIN GLARGINE [Concomitant]
     Active Substance: INSULIN GLARGINE
     Indication: DIABETES MELLITUS
     Route: 058
     Dates: start: 2013, end: 20150330
  10. INSULIN LISPRO [Concomitant]
     Active Substance: INSULIN LISPRO
     Indication: DIABETES MELLITUS
     Route: 058
     Dates: start: 2013, end: 20150330
  11. TOPIROXOSTAT [Concomitant]
     Indication: HYPERURICAEMIA
     Route: 048
     Dates: start: 2013, end: 20150330
  12. ISOSORBIDE DINITRATE. [Concomitant]
     Active Substance: ISOSORBIDE DINITRATE
     Indication: CARDIAC FAILURE
     Route: 048
     Dates: start: 2013, end: 20150330
  13. RABEPRAZOLE SODIUM. [Concomitant]
     Active Substance: RABEPRAZOLE SODIUM
     Indication: PROPHYLAXIS AGAINST GASTROINTESTINAL ULCER
     Route: 048
     Dates: start: 2013, end: 20150330
  14. CLOSTRIDIUM BUTYRICUM [Concomitant]
     Active Substance: CLOSTRIDIUM BUTYRICUM SPORES STRAIN M-55
     Indication: GASTROINTESTINAL DISORDER
     Dosage: 3 G DAILY
     Route: 048
     Dates: start: 20140630, end: 20150330
  15. BIFIDOBACTERIUM [Concomitant]
     Active Substance: BIFIDOBACTERIUM LONGUM
     Indication: GASTROINTESTINAL DISORDER
     Dosage: 3 TAB DAILY
     Route: 048
     Dates: start: 2013, end: 20150330
  16. BISOPROLOL FUMARATE. [Concomitant]
     Active Substance: BISOPROLOL FUMARATE
     Indication: CARDIAC FAILURE
     Route: 048
     Dates: start: 2013, end: 20150330
  17. MITIGLINIDE CALCIUM HYDRATE [Concomitant]
     Active Substance: MITIGLINIDE CALCIUM HYDRATE
     Indication: DIABETES MELLITUS
     Dosage: 1 TAB DAILY
     Route: 048
     Dates: start: 2013, end: 20150330
  18. LEVOCETRIZINE HYDROCHLORIDE [Concomitant]
     Indication: SEASONAL ALLERGY
     Route: 048
     Dates: start: 2013, end: 20150330

REACTIONS (1)
  - Pancreatic carcinoma [Not Recovered/Not Resolved]

NARRATIVE: CASE EVENT DATE: 20150327
